FAERS Safety Report 17942386 (Version 2)
Quarter: 2021Q1

REPORT INFORMATION
  Report Type: Spontaneous
  Country: CN (occurrence: CN)
  Receive Date: 20200625
  Receipt Date: 20210305
  Transmission Date: 20210419
  Serious: Yes (Other)
  Sender: FDA-Public Use
  Company Number: CN-ROCHE-2629348

PATIENT
  Age: 66 Year
  Sex: Male

DRUGS (21)
  1. AVASTIN [Suspect]
     Active Substance: BEVACIZUMAB
     Route: 065
     Dates: start: 20191027
  2. PEMETREXED. [Concomitant]
     Active Substance: PEMETREXED
     Dates: start: 20190911
  3. CARBOPLATIN. [Concomitant]
     Active Substance: CARBOPLATIN
     Indication: LUNG ADENOCARCINOMA
     Dates: start: 20190821
  4. AVASTIN [Suspect]
     Active Substance: BEVACIZUMAB
     Indication: LUNG ADENOCARCINOMA
     Route: 065
     Dates: start: 20190710, end: 20190731
  5. AVASTIN [Suspect]
     Active Substance: BEVACIZUMAB
     Route: 065
     Dates: start: 20191119
  6. AVASTIN [Suspect]
     Active Substance: BEVACIZUMAB
     Route: 065
     Dates: start: 20191217
  7. AVASTIN [Suspect]
     Active Substance: BEVACIZUMAB
     Route: 065
     Dates: start: 20200114
  8. PEMETREXED. [Concomitant]
     Active Substance: PEMETREXED
     Indication: LUNG ADENOCARCINOMA
     Dosage: FOR DAY 01
     Dates: start: 20190710, end: 20190731
  9. PEMETREXED. [Concomitant]
     Active Substance: PEMETREXED
     Dates: start: 20191001
  10. PEMETREXED. [Concomitant]
     Active Substance: PEMETREXED
     Dates: start: 20191027
  11. CARBOPLATIN. [Concomitant]
     Active Substance: CARBOPLATIN
     Dates: start: 20190911
  12. DOCETAXEL. [Concomitant]
     Active Substance: DOCETAXEL
     Dates: start: 20200327
  13. AVASTIN [Suspect]
     Active Substance: BEVACIZUMAB
     Route: 065
     Dates: start: 20190821
  14. AVASTIN [Suspect]
     Active Substance: BEVACIZUMAB
     Route: 065
     Dates: start: 20190911
  15. AVASTIN [Suspect]
     Active Substance: BEVACIZUMAB
     Route: 065
     Dates: start: 20191001
  16. PEMETREXED. [Concomitant]
     Active Substance: PEMETREXED
     Dates: start: 20190821
  17. CISPLATIN. [Concomitant]
     Active Substance: CISPLATIN
     Indication: LUNG ADENOCARCINOMA
     Dosage: DAY 1 TO DAY 3
     Dates: start: 20190710, end: 20190731
  18. CARBOPLATIN. [Concomitant]
     Active Substance: CARBOPLATIN
     Dosage: DAY 2
     Dates: start: 20191027
  19. DOCETAXEL. [Concomitant]
     Active Substance: DOCETAXEL
     Dates: start: 20200306
  20. CARBOPLATIN. [Concomitant]
     Active Substance: CARBOPLATIN
     Dates: start: 20191001
  21. DOCETAXEL. [Concomitant]
     Active Substance: DOCETAXEL
     Indication: LUNG ADENOCARCINOMA
     Dates: start: 20200214

REACTIONS (3)
  - Haemangioma [Unknown]
  - Acute kidney injury [Recovering/Resolving]
  - Hyperkalaemia [Recovering/Resolving]
